FAERS Safety Report 5265114-5 (Version None)
Quarter: 2007Q1

REPORT INFORMATION
  Report Type: 
  Country: None (occurrence: None)
  Receive Date: 20070314
  Receipt Date: 20070304
  Transmission Date: 20070707
  Serious: Yes (Death, Other)
  Sender: FDA-Public Use
  Company Number: AU-JNJFOC-20070106975

PATIENT
  Age: 80 Year
  Sex: Female

DRUGS (5)
  1. DURAGESIC-100 [Suspect]
     Route: 062
  2. DURAGESIC-100 [Suspect]
     Indication: CANCER PAIN
     Route: 062
  3. ROHYPNOL [Concomitant]
     Indication: DRUG USE FOR UNKNOWN INDICATION
     Route: 065
  4. LOSEC [Concomitant]
     Route: 065
  5. ENDEP [Concomitant]
     Route: 065

REACTIONS (6)
  - BREAST CANCER [None]
  - CONFUSIONAL STATE [None]
  - DEPRESSION [None]
  - MEMORY IMPAIRMENT [None]
  - SOMNOLENCE [None]
  - YELLOW SKIN [None]
